FAERS Safety Report 8080482-7 (Version None)
Quarter: 2012Q1

REPORT INFORMATION
  Report Type: 
  Country: None (occurrence: None)
  Receive Date: 20120130
  Receipt Date: 20120119
  Transmission Date: 20120608
  Serious: Yes (Hospitalization)
  Sender: FDA-Public Use
  Company Number: JP-SANOFI-AVENTIS-2012SA001278

PATIENT
  Age: 54 Year
  Sex: Female
  Weight: 75.6 kg

DRUGS (7)
  1. TAXOTERE [Suspect]
     Indication: BREAST CANCER
     Dosage: FORM: FOR DRIP INFUSION
     Route: 041
     Dates: start: 20111109
  2. TAXOTERE [Suspect]
     Indication: ADJUVANT THERAPY
     Dosage: FORM: FOR DRIP INFUSION
     Route: 041
     Dates: start: 20111109
  3. CYCLOPHOSPHAMIDE [Suspect]
     Indication: BREAST CANCER
     Route: 041
     Dates: start: 20111109
  4. DECADRON [Concomitant]
  5. KYTRIL [Concomitant]
  6. SULFAMETHOXAZOLE [Suspect]
     Route: 065
  7. SODIUM CHLORIDE [Concomitant]

REACTIONS (5)
  - DRUG ERUPTION [None]
  - RASH [None]
  - URTICARIA [None]
  - RASH GENERALISED [None]
  - CHOKING [None]
